FAERS Safety Report 7473340-X (Version None)
Quarter: 2011Q2

REPORT INFORMATION
  Report Type: 
  Country: None (occurrence: None)
  Receive Date: 20110511
  Receipt Date: 20110504
  Transmission Date: 20111010
  Serious: Yes (Hospitalization)
  Sender: FDA-Public Use
  Company Number: BR-US-EMD SERONO, INC.-7057949

PATIENT
  Sex: Male

DRUGS (2)
  1. REBIF [Suspect]
     Dates: start: 20110401
  2. REBIF [Suspect]
     Indication: RELAPSING-REMITTING MULTIPLE SCLEROSIS
     Route: 058
     Dates: start: 20091105, end: 20110328

REACTIONS (2)
  - VISION BLURRED [None]
  - EYE DISORDER [None]
